FAERS Safety Report 9247428 (Version 1)
Quarter: 2013Q2

REPORT INFORMATION
  Report Type: Report from Study
  Country: CA (occurrence: CA)
  Receive Date: 20130423
  Receipt Date: 20130423
  Transmission Date: 20140414
  Serious: Yes (Other)
  Sender: FDA-Public Use
  Company Number: CA-JNJFOC-20130408857

PATIENT
  Age: 25 Year
  Sex: Female
  Weight: 45 kg

DRUGS (6)
  1. REMICADE [Suspect]
     Indication: PRODUCT USED FOR UNKNOWN INDICATION
     Route: 042
     Dates: start: 201209
  2. VENTOLIN [Concomitant]
     Route: 065
  3. TECTA [Concomitant]
     Route: 065
  4. ALVESCO [Concomitant]
     Route: 065
  5. BIRTH CONTROL PILLS [Concomitant]
     Route: 065
  6. PULMICORT [Concomitant]
     Route: 065

REACTIONS (1)
  - Heart rate increased [Recovering/Resolving]
